FAERS Safety Report 13511751 (Version 1)
Quarter: 2017Q2

REPORT INFORMATION
  Report Type: Spontaneous
  Country: US (occurrence: US)
  Receive Date: 20170503
  Receipt Date: 20170503
  Transmission Date: 20170830
  Serious: Yes (Other)
  Sender: FDA-Public Use
  Company Number: None

PATIENT
  Age: 31 Year
  Sex: Female
  Weight: 49.5 kg

DRUGS (1)
  1. MISOPROSTOL. [Suspect]
     Active Substance: MISOPROSTOL
     Indication: ABORTION MISSED
     Dosage: ?          QUANTITY:4 TABLET(S);OTHER FREQUENCY:ONCE;?
     Route: 067
     Dates: start: 20170417, end: 20170417

REACTIONS (3)
  - Muscle tightness [None]
  - Pain in jaw [None]
  - Neck pain [None]

NARRATIVE: CASE EVENT DATE: 20170418
